FAERS Safety Report 9150163 (Version 5)
Quarter: 2013Q4

REPORT INFORMATION
  Report Type: Report from Study
  Country: CA (occurrence: CA)
  Receive Date: 20130308
  Receipt Date: 20131003
  Transmission Date: 20140711
  Serious: Yes (Other)
  Sender: FDA-Public Use
  Company Number: CA-ROCHE-1174672

PATIENT
  Age: 33 Year
  Sex: Female
  Weight: 100 kg

DRUGS (8)
  1. ACTEMRA [Suspect]
     Indication: RHEUMATOID ARTHRITIS
     Route: 042
     Dates: start: 20110711
  2. METHOTREXATE [Concomitant]
  3. FOLIC ACID [Concomitant]
  4. BISOPROLOL [Concomitant]
  5. EFFEXOR [Concomitant]
  6. CELEBREX [Concomitant]
  7. PREDNISONE [Concomitant]
     Dosage: HALF A TABLET OF PREDNISONE WHEN SHE WAS IN PAIN
     Route: 065
  8. DIOVAN [Concomitant]

REACTIONS (5)
  - Cartilage injury [Not Recovered/Not Resolved]
  - Nasopharyngitis [Not Recovered/Not Resolved]
  - Arthralgia [Not Recovered/Not Resolved]
  - Weight decreased [Not Recovered/Not Resolved]
  - Oedema peripheral [Recovered/Resolved]
